FAERS Safety Report 8782183 (Version 2)
Quarter: 2012Q4

REPORT INFORMATION
  Report Type: 
  Country: US (occurrence: US)
  Receive Date: 20120913
  Receipt Date: 20121210
  Transmission Date: 20130627
  Serious: No
  Sender: FDA-Public Use
  Company Number: US-VERTEX PHARMACEUTICAL INC.-AE-2012-010511

PATIENT
  Age: 62 Year
  Sex: Male
  Weight: 79 kg

DRUGS (9)
  1. VX-950 (TELAPREVIR) [Suspect]
     Indication: HEPATITIS C
     Dosage: UNK
     Dates: start: 2012, end: 20120926
  2. PEGASYS [Concomitant]
     Indication: HEPATITIS C
     Dosage: 180 ?g, qw
     Route: 058
     Dates: start: 20120509
  3. RIBAVIRIN [Concomitant]
     Indication: HEPATITIS C
     Dosage: 600 mg, bid
     Route: 048
     Dates: start: 20120509
  4. SYNTHROID [Concomitant]
     Dosage: 137 ?g, UNK
     Route: 048
  5. SIMVASTATIN [Concomitant]
     Dosage: 40 mg, qd
     Route: 048
  6. METOPROLOL [Concomitant]
     Dosage: 25 mg, qd
     Route: 048
  7. ASPIRIN ADULT [Concomitant]
     Dosage: 81 mg, qd
     Route: 048
  8. PRAVASTATIN [Concomitant]
     Route: 048
  9. IBUPROFEN [Concomitant]
     Dosage: UNK, prn
     Route: 048

REACTIONS (5)
  - Mood swings [Unknown]
  - Proctalgia [Not Recovered/Not Resolved]
  - Anorectal discomfort [Unknown]
  - Anal pruritus [Not Recovered/Not Resolved]
  - Pruritus [Unknown]
